FAERS Safety Report 6717964-3 (Version None)
Quarter: 2010Q2

REPORT INFORMATION
  Report Type: 
  Country: None (occurrence: None)
  Receive Date: 20100510
  Receipt Date: 20100504
  Transmission Date: 20101027
  Serious: Yes (Life-Threatening)
  Sender: FDA-Public Use
  Company Number: PHHY2010PL27430

PATIENT
  Sex: Male
  Weight: 59 kg

DRUGS (6)
  1. CERTICAN [Suspect]
     Indication: RENAL TRANSPLANT
     Dosage: 3 MG/DAY
     Route: 048
     Dates: start: 20100414, end: 20100421
  2. TACROLIMUS [Concomitant]
     Dosage: UNK
     Dates: start: 20090815, end: 20100414
  3. PREDNISONE [Concomitant]
     Dosage: UNK
     Route: 048
     Dates: start: 20090815
  4. MYFORTIC [Concomitant]
     Dosage: UNK
     Route: 048
     Dates: start: 20090815
  5. VIVACOR [Concomitant]
     Dosage: UNK
     Route: 048
     Dates: start: 20090815
  6. ZEFFIX [Concomitant]
     Dosage: UNK
     Route: 048
     Dates: start: 20090815

REACTIONS (3)
  - INFLAMMATION [None]
  - INTERSTITIAL LUNG DISEASE [None]
  - PYREXIA [None]
